FAERS Safety Report 5285617-7 (Version None)
Quarter: 2007Q1

REPORT INFORMATION
  Report Type: 
  Country: None (occurrence: None)
  Receive Date: 20070116
  Receipt Date: 20061201
  Transmission Date: 20070707
  Serious: No
  Sender: FDA-Public Use
  Company Number: 2006SP004230

PATIENT
  Age: 64 Year
  Sex: Female

DRUGS (1)
  1. LUNESTA [Suspect]
     Dosage: SEE IMAGE
     Route: 048

REACTIONS (1)
  - INSOMNIA [None]
